FAERS Safety Report 19593525 (Version 2)
Quarter: 2021Q3

REPORT INFORMATION
  Report Type: Report from Study
  Country: HU (occurrence: HU)
  Receive Date: 20210722
  Receipt Date: 20210803
  Transmission Date: 20211014
  Serious: Yes (Hospitalization)
  Sender: FDA-Public Use
  Company Number: HU-JNJFOC-20210727042

PATIENT
  Age: 58 Year
  Sex: Male
  Weight: 58 kg

DRUGS (18)
  1. RIVOTRIL [Concomitant]
     Active Substance: CLONAZEPAM
     Route: 048
  2. SANDIMMUN NEORAL [Concomitant]
     Active Substance: CYCLOSPORINE
     Indication: RHEUMATOID ARTHRITIS
     Route: 048
     Dates: start: 20210526, end: 20210708
  3. OSPAMOX [Concomitant]
     Active Substance: AMOXICILLIN
     Indication: PHARYNGITIS
     Route: 048
     Dates: start: 20210531
  4. OSPAMOX [Concomitant]
     Active Substance: AMOXICILLIN
     Route: 048
  5. KALIUM?R [Concomitant]
     Indication: PROPHYLAXIS
     Route: 048
     Dates: start: 20210526
  6. TELVIRAN [Concomitant]
     Indication: NEUTROPENIA
     Route: 048
  7. ESKETAMINE [Suspect]
     Active Substance: ESKETAMINE
     Indication: DEPRESSION
     Dosage: 19?MAY?2021 13:10
     Dates: start: 20180209
  8. DULOXETINE. [Concomitant]
     Active Substance: DULOXETINE
     Indication: DEPRESSION
     Route: 048
     Dates: start: 20170718
  9. BETAGEN [BETAMETHASONE] [Concomitant]
     Indication: TINNITUS
     Route: 048
     Dates: start: 20150429
  10. VITAMIN D3 [Concomitant]
     Active Substance: CHOLECALCIFEROL
     Indication: RHEUMATOID ARTHRITIS
     Dosage: DOSE: 3000, UNIT: OTHER
     Route: 048
     Dates: start: 20190801
  11. MEDROL [Concomitant]
     Active Substance: METHYLPREDNISOLONE
     Indication: NEUTROPENIA
     Route: 048
  12. PANTOPRAZOL SANDOZ [Concomitant]
     Active Substance: PANTOPRAZOLE SODIUM
     Indication: PROPHYLAXIS
     Route: 048
     Dates: start: 20201204
  13. PANTOPRAZOL SANDOZ [Concomitant]
     Active Substance: PANTOPRAZOLE SODIUM
     Route: 048
  14. MEDROL [Concomitant]
     Active Substance: METHYLPREDNISOLONE
     Indication: GRANULOCYTOPENIA
     Route: 048
     Dates: start: 20210530
  15. KALIUM?R [Concomitant]
     Route: 048
  16. TELVIRAN [Concomitant]
     Indication: GRANULOCYTOPENIA
     Route: 065
  17. RIVOTRIL [Concomitant]
     Active Substance: CLONAZEPAM
     Indication: ANXIETY
     Route: 048
     Dates: start: 20170307
  18. NOOTROPIL [Concomitant]
     Active Substance: PIRACETAM
     Indication: TINNITUS
     Route: 048
     Dates: start: 20161017

REACTIONS (1)
  - Pyrexia [Recovered/Resolved]

NARRATIVE: CASE EVENT DATE: 20210707
